FAERS Safety Report 5764000-1 (Version None)
Quarter: 2008Q2

REPORT INFORMATION
  Report Type: 
  Country: None (occurrence: None)
  Receive Date: 20080609
  Receipt Date: 20080305
  Transmission Date: 20081010
  Serious: No
  Sender: FDA-Public Use
  Company Number: 002#2#2008-00100

PATIENT
  Age: 82 Year
  Sex: Female
  Weight: 77 kg

DRUGS (15)
  1. NEUPRO [Suspect]
     Indication: PARKINSON'S DISEASE
     Dosage: 2MG/24H,1 IN 1 D, TRANSDERMAL ; 4MG/24H,1 IN 1 D,TRANSDERMAL ; 6MG/24H,1 IN 1 D,TRANSDERMAL
     Route: 062
     Dates: start: 20080101, end: 20080101
  2. NEUPRO [Suspect]
     Indication: PARKINSON'S DISEASE
     Dosage: 2MG/24H,1 IN 1 D, TRANSDERMAL ; 4MG/24H,1 IN 1 D,TRANSDERMAL ; 6MG/24H,1 IN 1 D,TRANSDERMAL
     Route: 062
     Dates: start: 20080101, end: 20080201
  3. NEUPRO [Suspect]
     Indication: PARKINSON'S DISEASE
     Dosage: 2MG/24H,1 IN 1 D, TRANSDERMAL ; 4MG/24H,1 IN 1 D,TRANSDERMAL ; 6MG/24H,1 IN 1 D,TRANSDERMAL
     Route: 062
     Dates: start: 20080201
  4. CARBIDOPA AND LEVODOPA [Concomitant]
  5. FLECAINIDE ACETATE [Concomitant]
  6. LIPITOR [Concomitant]
  7. LEVOTHYROXINE SODIUM [Concomitant]
  8. GABAPENTIN [Concomitant]
  9. ARICEPT [Concomitant]
  10. NEXIUM [Concomitant]
  11. DETROL LA [Concomitant]
  12. FLURAZEPAM [Concomitant]
  13. DARVOCET [Concomitant]
  14. REFRESH [Concomitant]
  15. MULTIVITAMIN [Concomitant]

REACTIONS (3)
  - APPLICATION SITE ERYTHEMA [None]
  - APPLICATION SITE PRURITUS [None]
  - APPLICATION SITE REACTION [None]
